FAERS Safety Report 15203211 (Version 2)
Quarter: 2018Q4

REPORT INFORMATION
  Report Type: Report from Study
  Country: IT (occurrence: IT)
  Receive Date: 20180726
  Receipt Date: 20181001
  Transmission Date: 20190204
  Serious: Yes (Other)
  Sender: FDA-Public Use
  Company Number: IT-PFIZER INC-2018300614

PATIENT
  Age: 88 Year
  Sex: Male

DRUGS (7)
  1. DALACIN C FOSFATO [Suspect]
     Active Substance: CLINDAMYCIN PHOSPHATE
     Indication: PNEUMONITIS
     Dosage: 3 DF, 1X/DAY
     Dates: start: 20130406, end: 20130408
  2. SANDIMMUN [Concomitant]
     Active Substance: CYCLOSPORINE
     Dosage: UNK
  3. ZITROMAX [Suspect]
     Active Substance: AZITHROMYCIN
     Indication: PNEUMONITIS
     Dosage: 1 DF, 1X/DAY
     Dates: start: 20130406, end: 20130408
  4. LASIX [Concomitant]
     Active Substance: FUROSEMIDE
     Dosage: UNK
  5. TRIATEC /00116401/ [Concomitant]
     Active Substance: ACETAMINOPHEN\CODEINE PHOSPHATE
     Dosage: UNK
  6. MINIAS [Concomitant]
     Active Substance: LORMETAZEPAM
     Dosage: UNK
  7. CARDIOASPIRIN [Concomitant]
     Active Substance: ASPIRIN
     Dosage: UNK

REACTIONS (2)
  - Dermatitis exfoliative generalised [Recovering/Resolving]
  - Rash pustular [Recovering/Resolving]

NARRATIVE: CASE EVENT DATE: 20130408
